FAERS Safety Report 5087716-1 (Version None)
Quarter: 2006Q3

REPORT INFORMATION
  Report Type: 
  Country: None (occurrence: None)
  Receive Date: 20060731
  Receipt Date: 20060501
  Transmission Date: 20061208
  Serious: Yes (Life-Threatening, Hospitalization)
  Sender: FDA-Public Use
  Company Number: 200612076BWH

PATIENT
  Sex: Male
  Weight: 81.6475 kg

DRUGS (4)
  1. AVELOX [Suspect]
     Indication: BRONCHITIS
  2. AVELOX [Suspect]
     Indication: COUGH
  3. AVELOX [Suspect]
     Indication: PULMONARY CONGESTION
  4. TOPROL-XL [Suspect]
     Indication: ARRHYTHMIA

REACTIONS (3)
  - ANAPHYLACTIC REACTION [None]
  - DIZZINESS [None]
  - DYSPNOEA [None]
